FAERS Safety Report 9507486 (Version 1)
Quarter: 2013Q3

REPORT INFORMATION
  Report Type: Spontaneous
  Country: DE (occurrence: DE)
  Receive Date: 20130909
  Receipt Date: 20130909
  Transmission Date: 20140515
  Serious: Yes (Hospitalization)
  Sender: FDA-Public Use
  Company Number: DE-SANOFI-AVENTIS-2013SA088391

PATIENT
  Age: 70 Year
  Sex: Male
  Weight: 86 kg

DRUGS (4)
  1. PLAVIX [Suspect]
     Indication: PRODUCT USED FOR UNKNOWN INDICATION
     Dosage: 1-0-0
     Route: 048
     Dates: start: 201304
  2. ZOTAROLIMUS [Suspect]
     Indication: CORONARY ARTERY DISEASE
     Route: 013
     Dates: start: 201305
  3. EVEROLIMUS [Suspect]
     Indication: CORONARY ARTERY DISEASE
     Route: 013
     Dates: start: 201304
  4. BISOPROLOL [Concomitant]
     Dosage: 1-0-0
     Route: 048
     Dates: start: 201304

REACTIONS (2)
  - Respiratory failure [Recovered/Resolved with Sequelae]
  - Pneumonitis [Recovered/Resolved with Sequelae]
